FAERS Safety Report 9314532 (Version 1)
Quarter: 2013Q2

REPORT INFORMATION
  Report Type: Report from Study
  Country: ZA (occurrence: ZA)
  Receive Date: 20130529
  Receipt Date: 20130529
  Transmission Date: 20140414
  Serious: Yes (Hospitalization)
  Sender: FDA-Public Use
  Company Number: ZA-ROCHE-1228818

PATIENT
  Age: 64 Year
  Sex: Female

DRUGS (7)
  1. MIRCERA [Suspect]
     Indication: PRODUCT USED FOR UNKNOWN INDICATION
     Route: 058
     Dates: start: 20070831
  2. MIRCERA [Suspect]
     Route: 058
     Dates: start: 20090923
  3. MIRCERA [Suspect]
     Route: 058
     Dates: start: 200910
  4. MIRCERA [Suspect]
     Route: 058
     Dates: start: 201210
  5. RECORMON [Concomitant]
     Route: 065
     Dates: start: 20070831
  6. RECORMON [Concomitant]
     Route: 065
     Dates: start: 200805
  7. RECORMON [Concomitant]
     Route: 065
     Dates: start: 200906

REACTIONS (1)
  - Vasculitis [Unknown]
